FAERS Safety Report 9490101 (Version 6)
Quarter: 2014Q2

REPORT INFORMATION
  Report Type: Report from Study
  Country: DE (occurrence: DE)
  Receive Date: 20130829
  Receipt Date: 20140515
  Transmission Date: 20141212
  Serious: Yes (Death, Hospitalization)
  Sender: FDA-Public Use
  Company Number: DE-ROCHE-1266961

PATIENT
  Age: 77 Year
  Sex: Male

DRUGS (10)
  1. VEMURAFENIB [Suspect]
     Indication: MALIGNANT MELANOMA
     Route: 048
     Dates: start: 20130809, end: 20130827
  2. ASPIRIN [Concomitant]
  3. MOLSIDOMINE [Concomitant]
  4. EZETIMIBE/SIMVASTATIN [Concomitant]
  5. RAMIPRIL [Concomitant]
  6. PREGABALIN [Concomitant]
  7. XIPAMIDE [Concomitant]
  8. DIPYRONE [Concomitant]
  9. HYDROMORPHONE HCL [Concomitant]
  10. POLYETHYLENE GLYCOL [Concomitant]

REACTIONS (1)
  - Hepatic enzyme increased [Fatal]
